FAERS Safety Report 16827022 (Version 1)
Quarter: 2019Q3

REPORT INFORMATION
  Report Type: Spontaneous
  Country: US (occurrence: US)
  Receive Date: 20190919
  Receipt Date: 20190919
  Transmission Date: 20191005
  Serious: No
  Sender: FDA-Public Use
  Company Number: US-AMGEN-USASP2019148572

PATIENT
  Age: 57 Year
  Sex: Female

DRUGS (3)
  1. INSULIN [Concomitant]
     Active Substance: INSULIN NOS
  2. VITAMIN B12 [Concomitant]
     Active Substance: CYANOCOBALAMIN
  3. REPATHA [Suspect]
     Active Substance: EVOLOCUMAB
     Indication: BLOOD TRIGLYCERIDES ABNORMAL
     Dosage: 140 MILLIGRAM, Q2WK
     Route: 065
     Dates: start: 20190826

REACTIONS (14)
  - Dyspnoea [Unknown]
  - Musculoskeletal pain [Unknown]
  - Headache [Unknown]
  - Pain in jaw [Unknown]
  - Papule [Recovering/Resolving]
  - Increased upper airway secretion [Unknown]
  - Productive cough [Unknown]
  - Rash [Recovering/Resolving]
  - Stomatitis [Unknown]
  - Pruritus [Unknown]
  - Chest pain [Unknown]
  - Insomnia [Unknown]
  - Blood glucose increased [Recovering/Resolving]
  - Ear pain [Unknown]

NARRATIVE: CASE EVENT DATE: 2019
